FAERS Safety Report 4285043-3 (Version None)
Quarter: 2004Q1

REPORT INFORMATION
  Report Type: 
  Country: None (occurrence: None)
  Receive Date: 20040203
  Receipt Date: 20040203
  Transmission Date: 20041129
  Serious: No
  Sender: FDA-Public Use
  Company Number: None

PATIENT
  Sex: Male
  Weight: 100 kg

DRUGS (12)
  1. FENTANYL [Suspect]
     Indication: SEDATION
     Dosage: 50 MCG Q 2 H PRN IV
     Route: 042
     Dates: start: 20030909
  2. ALLOPURINOL [Concomitant]
  3. HYDROCORTISONE [Concomitant]
  4. LACTULOSE [Concomitant]
  5. BACTRIM [Concomitant]
  6. LEVOFLOXACIN [Concomitant]
  7. FUROSEMIDE [Concomitant]
  8. MORPHINE [Concomitant]
  9. OXYCODONE HCL [Concomitant]
  10. LORAZEPAM [Concomitant]
  11. HEPARIN [Concomitant]
  12. NOREPINEPHRINE [Concomitant]

REACTIONS (4)
  - AGITATION [None]
  - ANXIETY [None]
  - MULTI-ORGAN FAILURE [None]
  - PAIN [None]
